FAERS Safety Report 24264687 (Version 1)
Quarter: 2024Q3

REPORT INFORMATION
  Report Type: Spontaneous
  Country: US (occurrence: None)
  Receive Date: 20240828
  Receipt Date: 20240828
  Transmission Date: 20241017
  Serious: Yes (unspecified)
  Sender: Public
  Company Number: None

PATIENT
  Age: 66 Year
  Sex: Male
  Weight: 69.75 kg

DRUGS (3)
  1. GAVILYTE - C [Suspect]
     Active Substance: POLYETHYLENE GLYCOL 3350\POTASSIUM CHLORIDE\SODIUM BICARBONATE\SODIUM CHLORIDE\SODIUM SULFATE
     Indication: Colonoscopy
     Dosage: OTHER FREQUENCY : 8OZ EVERY 15MIN;?
     Route: 048
     Dates: start: 20240827, end: 20240827
  2. ATORVASTATIN [Concomitant]
  3. LEVOTHYROXINE [Concomitant]

REACTIONS (18)
  - Rash erythematous [None]
  - Rash pruritic [None]
  - Rash [None]
  - Rash [None]
  - Rash [None]
  - Cold sweat [None]
  - Asthenia [None]
  - Cough [None]
  - Malaise [None]
  - Loss of consciousness [None]
  - Fall [None]
  - Dyspnoea [None]
  - Hyperhidrosis [None]
  - Vision blurred [None]
  - Nausea [None]
  - Pallor [None]
  - Drug hypersensitivity [None]
  - Syncope [None]

NARRATIVE: CASE EVENT DATE: 20240828
